FAERS Safety Report 16877061 (Version 1)
Quarter: 2019Q4

REPORT INFORMATION
  Report Type: Spontaneous
  Country: US (occurrence: US)
  Receive Date: 20191002
  Receipt Date: 20191002
  Transmission Date: 20200122
  Serious: Yes (Other)
  Sender: FDA-Public Use
  Company Number: US-TEVA-2019-US-1115578

PATIENT
  Age: 58 Year
  Sex: Male

DRUGS (5)
  1. CARBIDOPA AND LEVODOPA [Suspect]
     Active Substance: CARBIDOPA\LEVODOPA
     Indication: PARKINSON^S DISEASE
     Dosage: TWO TABLETS FOUR TIMES A DAY AND THREE TABLETS EVERY NIGHT AT BEDTIME
     Route: 065
  2. ROPINIROLE XL [Concomitant]
     Active Substance: ROPINIROLE
     Indication: PARKINSON^S DISEASE
     Dosage: 4 MILLIGRAM DAILY;
     Route: 065
  3. DROXIDOPA [Interacting]
     Active Substance: DROXIDOPA
     Dosage: DOSE TITRATED UP TO 400 MG THREE TIMES A DAY OVER 4 WEEKS
     Route: 065
  4. ENTACAPONE. [Interacting]
     Active Substance: ENTACAPONE
     Indication: PARKINSON^S DISEASE
     Dosage: 600 MILLIGRAM DAILY;
     Route: 065
  5. DROXIDOPA [Interacting]
     Active Substance: DROXIDOPA
     Indication: ORTHOSTATIC HYPOTENSION
     Dosage: 200 MILLIGRAM DAILY;
     Route: 065

REACTIONS (5)
  - Mania [Recovered/Resolved]
  - Drug interaction [Unknown]
  - Fear [Recovered/Resolved]
  - Agitation [Recovered/Resolved]
  - Confusional state [Recovered/Resolved]
